FAERS Safety Report 19800774 (Version 1)
Quarter: 2021Q3

REPORT INFORMATION
  Report Type: Spontaneous
  Country: US (occurrence: US)
  Receive Date: 20210907
  Receipt Date: 20210907
  Transmission Date: 20211014
  Serious: No
  Sender: FDA-Public Use
  Company Number: US-PERRIGO-21US007595

PATIENT
  Age: 78 Year
  Sex: Female
  Weight: 87.53 kg

DRUGS (16)
  1. TRAZODONE [Concomitant]
     Active Substance: TRAZODONE HYDROCHLORIDE
     Indication: INSOMNIA
     Dosage: UNKNOWN, UNKNOWN
     Route: 065
  2. WARFARIN [Suspect]
     Active Substance: WARFARIN
     Indication: COAGULOPATHY
     Dosage: 2 MG, QD
     Route: 048
     Dates: start: 2010
  3. PRAVASTATIN. [Concomitant]
     Active Substance: PRAVASTATIN
     Indication: BLOOD CHOLESTEROL INCREASED
     Dosage: UNKNOWN, UNKNOWN
     Route: 065
  4. DIGOXIN. [Concomitant]
     Active Substance: DIGOXIN
     Indication: HYPERTENSION
     Dosage: UNKNOWN, UNKNOWN
     Route: 065
  5. NEXIUM [Concomitant]
     Active Substance: ESOMEPRAZOLE MAGNESIUM
     Indication: GASTROOESOPHAGEAL REFLUX DISEASE
     Dosage: UNKNOWN, UNKNOWN
     Route: 065
  6. VITAMIN D3 [Concomitant]
     Active Substance: CHOLECALCIFEROL
     Indication: SUPPLEMENTATION THERAPY
     Dosage: UNKNOWN, UNKNOWN
     Route: 065
  7. COLACE [Concomitant]
     Active Substance: DOCUSATE SODIUM
     Indication: ABNORMAL FAECES
     Dosage: UNKNOWN, UNKNOWN
     Route: 065
  8. PROBIOTIC                          /06395501/ [Concomitant]
     Active Substance: BIFIDOBACTERIUM ANIMALIS LACTIS
     Indication: SUPPLEMENTATION THERAPY
     Dosage: UNKNOWN, UNKNOWN
     Route: 065
  9. TRIAMCINOLONE ACETONIDE. [Suspect]
     Active Substance: TRIAMCINOLONE ACETONIDE
     Indication: NASAL CONGESTION
     Dosage: 2 SPRAYS IN EACH NOSTRIL, PRN
     Route: 045
     Dates: start: 20210515
  10. STIOLTO RESPIMAT [Concomitant]
     Active Substance: OLODATEROL HYDROCHLORIDE\TIOTROPIUM BROMIDE MONOHYDRATE
     Indication: CHRONIC OBSTRUCTIVE PULMONARY DISEASE
     Dosage: UNKNOWN, UNKNOWN
     Route: 065
  11. CARVEDILOL. [Concomitant]
     Active Substance: CARVEDILOL
     Indication: HYPERTENSION
     Dosage: UNKNOWN, UNKNOWN
     Route: 065
  12. LOSARTAN. [Concomitant]
     Active Substance: LOSARTAN
     Indication: HYPERTENSION
     Dosage: UNKNOWN, UNKNOWN
     Route: 065
  13. TOPAMAX [Concomitant]
     Active Substance: TOPIRAMATE
     Indication: CHRONIC OBSTRUCTIVE PULMONARY DISEASE
     Dosage: UNKNOWN, UNKNOWN
     Route: 065
  14. ZYRTEC [Concomitant]
     Active Substance: CETIRIZINE HYDROCHLORIDE
     Indication: HYPERSENSITIVITY
     Dosage: UNKNOWN, UNKNOWN
     Route: 065
  15. FUROSEMIDE. [Concomitant]
     Active Substance: FUROSEMIDE
     Indication: OEDEMA
     Dosage: UNKNOWN, UNKNOWN
     Route: 065
  16. GLUCOSAMINE [Concomitant]
     Active Substance: GLUCOSAMINE
     Indication: ARTHRALGIA
     Dosage: UNKNOWN, UNKNOWN
     Route: 065

REACTIONS (3)
  - Epistaxis [Not Recovered/Not Resolved]
  - Inappropriate schedule of product administration [Not Recovered/Not Resolved]
  - International normalised ratio increased [Not Recovered/Not Resolved]

NARRATIVE: CASE EVENT DATE: 20210515
